FAERS Safety Report 8941509 (Version 1)
Quarter: 2012Q4

REPORT INFORMATION
  Report Type: 
  Country: US (occurrence: US)
  Receive Date: 20121203
  Receipt Date: 20121203
  Transmission Date: 20130627
  Serious: Yes (Hospitalization, Other)
  Sender: FDA-Public Use
  Company Number: US-ASTRAZENECA-2010SE54449

PATIENT
  Age: 71 Year
  Sex: Female
  Weight: 90.7 kg

DRUGS (10)
  1. NEXIUM [Suspect]
     Route: 048
  2. SEROQUEL XR [Suspect]
     Indication: SLEEP DISORDER
     Route: 048
  3. SEROQUEL XR [Suspect]
     Indication: DEPRESSION
     Route: 048
  4. SEROQUEL XR [Suspect]
     Indication: HALLUCINATION
     Route: 048
  5. SEROQUEL XR [Suspect]
     Indication: PSYCHOTIC DISORDER
     Route: 048
  6. PROVARA [Concomitant]
  7. PREMARIN [Concomitant]
  8. VESICARE [Concomitant]
     Indication: BLADDER DISORDER
  9. DEPAKOTE [Concomitant]
  10. VITAMINS [Concomitant]

REACTIONS (6)
  - Intervertebral disc displacement [Unknown]
  - Nerve compression [Unknown]
  - Gait disturbance [Unknown]
  - Fall [Unknown]
  - Head injury [Unknown]
  - Deafness [Unknown]
